FAERS Safety Report 17744370 (Version 1)
Quarter: 2020Q2

REPORT INFORMATION
  Report Type: Report from Study
  Country: IT (occurrence: IT)
  Receive Date: 20200504
  Receipt Date: 20200504
  Transmission Date: 20200714
  Serious: Yes (Hospitalization)
  Sender: FDA-Public Use
  Company Number: IT-AMGEN-ITACT2020071268

PATIENT
  Age: 56 Year
  Sex: Male

DRUGS (7)
  1. IDARUBICIN [Suspect]
     Active Substance: IDARUBICIN
     Indication: B PRECURSOR TYPE ACUTE LEUKAEMIA
     Dosage: 18 MILLIGRAM
     Route: 042
     Dates: start: 20200323
  2. CYTARABINE. [Suspect]
     Active Substance: CYTARABINE
     Indication: B PRECURSOR TYPE ACUTE LEUKAEMIA
     Dosage: 150 MILLIGRAM
     Route: 042
     Dates: start: 20200324, end: 20200327
  3. CYCLOPHOSPHAMIDE. [Suspect]
     Active Substance: CYCLOPHOSPHAMIDE
     Indication: B PRECURSOR TYPE ACUTE LEUKAEMIA
     Dosage: 1000 MILLIGRAM
     Route: 042
     Dates: start: 20200323
  4. DEXAMETHASONE SODIUM PHOSPHATE. [Suspect]
     Active Substance: DEXAMETHASONE SODIUM PHOSPHATE
     Indication: B PRECURSOR TYPE ACUTE LEUKAEMIA
     Dosage: 10 MILLIGRAM
     Route: 042
     Dates: start: 20200323
  5. BLINATUMOMAB [Suspect]
     Active Substance: BLINATUMOMAB
     Indication: B PRECURSOR TYPE ACUTE LEUKAEMIA
     Dosage: 28 MICROGRAM
     Route: 042
     Dates: start: 20191220, end: 20200117
  6. FILGRASTIM [Suspect]
     Active Substance: FILGRASTIM
     Indication: B PRECURSOR TYPE ACUTE LEUKAEMIA
     Dosage: 30 MU
     Route: 058
     Dates: start: 20200330, end: 20200412
  7. VINCRISTINE [Suspect]
     Active Substance: VINCRISTINE
     Indication: B PRECURSOR TYPE ACUTE LEUKAEMIA
     Dosage: 2 MILLIGRAM
     Route: 042
     Dates: start: 20200323

REACTIONS (2)
  - Escherichia bacteraemia [Recovered/Resolved]
  - Septic shock [Recovered/Resolved]

NARRATIVE: CASE EVENT DATE: 20200406
